FAERS Safety Report 5546110-7 (Version None)
Quarter: 2007Q4

REPORT INFORMATION
  Report Type: 
  Country: None (occurrence: None)
  Receive Date: 20071211
  Receipt Date: 20071022
  Transmission Date: 20080405
  Serious: No
  Sender: FDA-Public Use
  Company Number: US-BRISTOL-MYERS SQUIBB COMPANY-13952304

PATIENT
  Sex: Male

DRUGS (1)
  1. EMSAM [Suspect]
     Indication: DEPRESSION
     Dosage: INITIALLY 6MG FOR 2WEEKS, NOW 9MG FOR PAST 2 WEEKS
     Route: 062

REACTIONS (1)
  - CONDITION AGGRAVATED [None]
